FAERS Safety Report 10055625 (Version 1)
Quarter: 2014Q2

REPORT INFORMATION
  Report Type: Spontaneous
  Country: US (occurrence: None)
  Receive Date: 20140402
  Receipt Date: 20140402
  Transmission Date: 20141212
  Serious: Yes (Disabling, Other)
  Sender: FDA-Public Use
  Company Number: None

PATIENT
  Age: 58 Year
  Sex: Female
  Weight: 74.84 kg

DRUGS (1)
  1. TRAMADOL [Suspect]
     Indication: BACK PAIN
     Dosage: 1 TABLET EVERY 4-6 HOURS
     Route: 048
     Dates: start: 20060401, end: 20130401

REACTIONS (5)
  - Dizziness [None]
  - Vomiting [None]
  - Tinnitus [None]
  - Deafness [None]
  - Fear [None]
